FAERS Safety Report 9735275 (Version 1)
Quarter: 2013Q4

REPORT INFORMATION
  Report Type: Spontaneous
  Country: US (occurrence: None)
  Receive Date: 20131205
  Receipt Date: 20131205
  Transmission Date: 20140711
  Serious: Yes (Other)
  Sender: FDA-Public Use
  Company Number: None

PATIENT
  Age: 6 Year
  Sex: Male
  Weight: 31.75 kg

DRUGS (1)
  1. FLOVENT [Suspect]
     Indication: ASTHMA
     Dosage: 2 INHALATIONS, INHALATION
     Dates: start: 20131101, end: 20131120

REACTIONS (3)
  - Mood swings [None]
  - Obsessive-compulsive disorder [None]
  - Aggression [None]
